FAERS Safety Report 4706792-6 (Version None)
Quarter: 2005Q3

REPORT INFORMATION
  Report Type: 
  Country: None (occurrence: None)
  Receive Date: 20050705
  Receipt Date: 20050621
  Transmission Date: 20060218
  Serious: Yes (Other)
  Sender: FDA-Public Use
  Company Number: 2005BH000276

PATIENT
  Age: 21 Year
  Sex: Female

DRUGS (1)
  1. CLINDAMYCIN [Suspect]

REACTIONS (10)
  - ARTHRALGIA [None]
  - DIFFICULTY IN WALKING [None]
  - HAEMATURIA [None]
  - HENOCH-SCHONLEIN PURPURA [None]
  - JOINT SWELLING [None]
  - OEDEMA PERIPHERAL [None]
  - PAIN IN EXTREMITY [None]
  - RASH PAPULAR [None]
  - SKIN LESION [None]
  - VASCULITIS [None]
